FAERS Safety Report 10779673 (Version 1)
Quarter: 2015Q1

REPORT INFORMATION
  Report Type: Spontaneous
  Country: CO (occurrence: CO)
  Receive Date: 20150210
  Receipt Date: 20150210
  Transmission Date: 20150721
  Serious: Yes (Death)
  Sender: FDA-Public Use
  Company Number: CO-ASTELLAS-2015US003727

PATIENT
  Age: 56 Year
  Sex: Female

DRUGS (1)
  1. PROGRAF [Suspect]
     Active Substance: TACROLIMUS\TACROLIMUS ANHYDROUS
     Indication: LIVER TRANSPLANT
     Dosage: 6 MG, 1 IN 24 HOURS
     Route: 048
     Dates: start: 20061001, end: 20061010

REACTIONS (2)
  - Procedural complication [Fatal]
  - Liver transplant rejection [Fatal]

NARRATIVE: CASE EVENT DATE: 20141010
